FAERS Safety Report 8770820 (Version 2)
Quarter: 2012Q4

REPORT INFORMATION
  Report Type: 
  Country: VE (occurrence: VE)
  Receive Date: 20120906
  Receipt Date: 20120914
  Transmission Date: 20130627
  Serious: Yes (Other)
  Sender: FDA-Public Use
  Company Number: VE-PFIZER INC-2012218535

PATIENT
  Age: 69 Year
  Sex: Female

DRUGS (1)
  1. ZOLOFT [Suspect]
     Indication: PANIC ATTACK
     Dosage: 50 mg, 1x/day
     Route: 048
     Dates: start: 201207, end: 201207

REACTIONS (5)
  - Mental disorder [Recovered/Resolved]
  - Depression [Recovered/Resolved]
  - Tremor [Recovered/Resolved]
  - Tachycardia [Recovered/Resolved]
  - Nervousness [Recovered/Resolved]
